FAERS Safety Report 9183980 (Version 1)
Quarter: 2013Q1

REPORT INFORMATION
  Report Type: Spontaneous
  Country: US (occurrence: US)
  Receive Date: 20130322
  Receipt Date: 20130322
  Transmission Date: 20140127
  Serious: No
  Sender: FDA-Public Use
  Company Number: US-BRISTOL-MYERS SQUIBB COMPANY-16683633

PATIENT
  Age: 69 Year
  Sex: Male
  Weight: 105.67 kg

DRUGS (6)
  1. ERBITUX [Suspect]
     Indication: BASAL CELL CARCINOMA
     Route: 042
     Dates: start: 20120326
  2. BENADRYL [Concomitant]
  3. PREDNISONE [Concomitant]
  4. TESTOSTERONE [Concomitant]
  5. LEVOTHYROXINE [Concomitant]
  6. WARFARIN [Concomitant]
     Dosage: 5MG
     Route: 048

REACTIONS (8)
  - Rash papular [Unknown]
  - Blood magnesium decreased [Unknown]
  - Pruritus [Unknown]
  - Blood potassium decreased [Unknown]
  - Blister [Recovering/Resolving]
  - Prostatic specific antigen increased [Unknown]
  - International normalised ratio fluctuation [Unknown]
  - Thyroid function test abnormal [Unknown]
